FAERS Safety Report 14510264 (Version 1)
Quarter: 2018Q1

REPORT INFORMATION
  Report Type: Spontaneous
  Country: US (occurrence: US)
  Receive Date: 20180208
  Receipt Date: 20180208
  Transmission Date: 20180509
  Serious: No
  Sender: FDA-Public Use
  Company Number: None

PATIENT
  Age: 22 Year
  Sex: Female

DRUGS (1)
  1. LUPRON [Suspect]
     Active Substance: LEUPROLIDE ACETATE
     Indication: ENDOMETRIOSIS
     Dosage: ONE SYRINGE EVERY MONTH INTRAMUSCULARLY
     Route: 030
     Dates: start: 20171108

REACTIONS (1)
  - Hot flush [None]

NARRATIVE: CASE EVENT DATE: 20171213
